FAERS Safety Report 5921304-7 (Version None)
Quarter: 2008Q4

REPORT INFORMATION
  Report Type: 
  Country: None (occurrence: None)
  Receive Date: 20081014
  Receipt Date: 20080929
  Transmission Date: 20090506
  Serious: Yes (Other)
  Sender: FDA-Public Use
  Company Number: MC200800471

PATIENT

DRUGS (1)
  1. ANGIOMAX [Suspect]
     Indication: PERCUTANEOUS CORONARY INTERVENTION
     Dosage: SEE IMAGE
     Route: 040

REACTIONS (9)
  - CEREBROVASCULAR ACCIDENT [None]
  - COAGULOPATHY [None]
  - CORONARY ARTERY STENOSIS [None]
  - HAEMORRHAGE [None]
  - IN-STENT ARTERIAL RESTENOSIS [None]
  - REPERFUSION INJURY [None]
  - STENT OCCLUSION [None]
  - THROMBOSIS [None]
  - VENTRICULAR FIBRILLATION [None]
